FAERS Safety Report 5013347-5 (Version None)
Quarter: 2006Q2

REPORT INFORMATION
  Report Type: 
  Country: None (occurrence: None)
  Receive Date: 20060530
  Receipt Date: 20060417
  Transmission Date: 20061013
  Serious: No
  Sender: FDA-Public Use
  Company Number: US-GLAXOSMITHKLINE-A0601951A

PATIENT
  Age: 46 Year
  Sex: Female

DRUGS (4)
  1. WELLBUTRIN [Suspect]
     Indication: DEPRESSION
     Dosage: 150MG PER DAY
     Route: 048
     Dates: start: 20050801
  2. CELEXA [Concomitant]
  3. TOPAMAX [Concomitant]
  4. MYSOLINE [Concomitant]

REACTIONS (1)
  - DYSPHEMIA [None]
